FAERS Safety Report 5606981-2 (Version None)
Quarter: 2008Q1

REPORT INFORMATION
  Report Type: 
  Country: None (occurrence: None)
  Receive Date: 20080129
  Receipt Date: 20080123
  Transmission Date: 20080703
  Serious: Yes (Hospitalization)
  Sender: FDA-Public Use
  Company Number: US-GENENTECH-234559

PATIENT
  Age: 61 Year
  Sex: Female

DRUGS (12)
  1. BEVACIZUMAB [Suspect]
     Indication: BREAST CANCER
     Dosage: 558 MG, UNK
     Route: 042
     Dates: start: 20061017
  2. ADRIAMYCIN PFS [Suspect]
     Indication: BREAST CANCER
     Dosage: 94 MG, UNK
     Route: 042
     Dates: start: 20061017
  3. CYTOXAN [Suspect]
     Indication: BREAST CANCER
     Dosage: 942 MG, UNK
     Route: 042
     Dates: start: 20061017
  4. NEULASTA [Concomitant]
     Indication: PROPHYLAXIS
     Dosage: 6 MG, UNK
     Dates: start: 20061018, end: 20061101
  5. HYDROCHLOROTHIAZIDE [Concomitant]
     Indication: DRUG USE FOR UNKNOWN INDICATION
  6. POTASSIUM CHLORIDE [Concomitant]
     Indication: DRUG USE FOR UNKNOWN INDICATION
  7. NAPROXEN [Concomitant]
     Indication: DRUG USE FOR UNKNOWN INDICATION
  8. PREVACID [Concomitant]
     Indication: DRUG USE FOR UNKNOWN INDICATION
  9. M.V.I. [Concomitant]
     Indication: DRUG USE FOR UNKNOWN INDICATION
  10. CALCIUM GLUCONATE [Concomitant]
     Indication: DRUG USE FOR UNKNOWN INDICATION
  11. DOCUSATE [Concomitant]
     Indication: DRUG USE FOR UNKNOWN INDICATION
  12. LEVAQUIN [Concomitant]
     Indication: DRUG USE FOR UNKNOWN INDICATION

REACTIONS (2)
  - LIVER FUNCTION TEST ABNORMAL [None]
  - PYREXIA [None]
